FAERS Safety Report 5953700-6 (Version None)
Quarter: 2008Q4

REPORT INFORMATION
  Report Type: 
  Country: None (occurrence: None)
  Receive Date: 20081114
  Receipt Date: 20081104
  Transmission Date: 20090506
  Serious: Yes (Hospitalization)
  Sender: FDA-Public Use
  Company Number: JP-ASTRAZENECA-2007AP03922

PATIENT
  Age: 18875 Day
  Sex: Female
  Weight: 61.8 kg

DRUGS (3)
  1. ARIMIDEX [Suspect]
     Indication: BREAST CANCER
     Route: 048
     Dates: start: 20060925, end: 20070628
  2. LASIX [Concomitant]
     Indication: PERICARDITIS CONSTRICTIVE
     Route: 048
     Dates: start: 20060912, end: 20070904
  3. LEVOTHYROXINE SODIUM [Concomitant]
     Indication: HYPOTHYROIDISM
     Route: 048
     Dates: start: 20060925

REACTIONS (1)
  - LUNG DISORDER [None]
